FAERS Safety Report 24444106 (Version 2)
Quarter: 2024Q4

REPORT INFORMATION
  Report Type: Report from Study
  Country: US (occurrence: US)
  Receive Date: 20241016
  Receipt Date: 20241017
  Transmission Date: 20250115
  Serious: No
  Sender: ROCHE
  Company Number: US-ROCHE-2683486

PATIENT
  Age: 86 Year
  Sex: Male

DRUGS (19)
  1. RITUXAN [Suspect]
     Active Substance: RITUXIMAB
     Indication: Product used for unknown indication
     Dosage: 10 MG/ML(10ML) VIAL
     Route: 065
  2. VENCLEXTA [Suspect]
     Active Substance: VENETOCLAX
     Indication: Deafness neurosensory
     Dosage: 10MG, 50MG AND 100MG TABLET, DOSE PACK?TAKE 20MG(2X10MG TABS) BY MOUTH EVERY DAY ON WEEK 1. THEN, 50
     Route: 048
  3. VENCLEXTA [Suspect]
     Active Substance: VENETOCLAX
     Indication: Post polio syndrome
     Dosage: TAKE 2 TABLET(S) BY MOUTH EVERY DAY WITH FOOD
     Route: 048
  4. VENCLEXTA [Suspect]
     Active Substance: VENETOCLAX
     Indication: Chronic lymphocytic leukaemia
     Dosage: THEN, 50MG(1X50MG TAB) DAILY BY MOUTH WEEK 2.
     Route: 048
  5. VENCLEXTA [Suspect]
     Active Substance: VENETOCLAX
     Dosage: THEN, 100MG(1X100MG TAB) BY MOUTH DAILY WEEK 3.
     Route: 048
  6. VENCLEXTA [Suspect]
     Active Substance: VENETOCLAX
     Dosage: THEN, 200MG(2X100MG TABS) DAILY WEEK 4.
     Route: 048
  7. VENCLEXTA [Suspect]
     Active Substance: VENETOCLAX
     Dosage: TAKE 4 TABLET(S) BY MOUTH EVERY DAY WITH FOOD
     Route: 048
  8. ZYLOPRIM [Concomitant]
     Active Substance: ALLOPURINOL
  9. TENORMIN [Concomitant]
     Active Substance: ATENOLOL
  10. VASOTEC [Concomitant]
     Active Substance: ENALAPRIL MALEATE
  11. HYDRODIURIL [Concomitant]
     Active Substance: HYDROCHLOROTHIAZIDE
  12. IMBRUVICA [Concomitant]
     Active Substance: IBRUTINIB
  13. CLARITIN [Concomitant]
     Active Substance: LORATADINE
  14. NITROSTAT [Concomitant]
     Active Substance: NITROGLYCERIN
  15. PRAVACHOL [Concomitant]
     Active Substance: PRAVASTATIN SODIUM
  16. COMPAZINE [Concomitant]
     Active Substance: PROCHLORPERAZINE MALEATE
  17. TYLENOL [Concomitant]
     Active Substance: ACETAMINOPHEN
  18. METAMUCIL [Concomitant]
     Active Substance: PLANTAGO SEED
     Route: 048
  19. FLOMAX [Concomitant]
     Active Substance: TAMSULOSIN HYDROCHLORIDE

REACTIONS (3)
  - Urticaria [Unknown]
  - Bladder disorder [Unknown]
  - Dizziness [Unknown]

NARRATIVE: CASE EVENT DATE: 20151103
